FAERS Safety Report 26180733 (Version 1)
Quarter: 2025Q4

REPORT INFORMATION
  Report Type: Spontaneous
  Country: US (occurrence: None)
  Receive Date: 20251219
  Receipt Date: 20251219
  Transmission Date: 20260118
  Serious: Yes (Death)
  Sender: FDA-CTU
  Company Number: None

PATIENT
  Age: 35 Year
  Sex: Female

DRUGS (2)
  1. TAVNEOS [Suspect]
     Active Substance: AVACOPAN
     Indication: Granulomatosis with polyangiitis
     Dosage: FREQUENCY : TWICE A DAY;
     Route: 048
     Dates: start: 20230905
  2. TAVNEOS [Concomitant]
     Active Substance: AVACOPAN
     Dates: start: 20230925

REACTIONS (1)
  - Death [None]

NARRATIVE: CASE EVENT DATE: 20251218
